FAERS Safety Report 5748456-6 (Version None)
Quarter: 2008Q2

REPORT INFORMATION
  Report Type: 
  Country: None (occurrence: None)
  Receive Date: 20080523
  Receipt Date: 20080514
  Transmission Date: 20081010
  Serious: Yes (Death)
  Sender: FDA-Public Use
  Company Number: CN-PFIZER INC-2008039897

PATIENT
  Sex: Male
  Weight: 75 kg

DRUGS (3)
  1. DIFLUCAN [Suspect]
     Indication: FUNGAL INFECTION
     Route: 042
     Dates: start: 20080329, end: 20080411
  2. PIPERACILLIN AND TAZOBACTAM [Concomitant]
     Route: 042
     Dates: start: 20080401, end: 20080406
  3. AZTREONAM [Concomitant]
     Route: 042
     Dates: start: 20080324, end: 20080329

REACTIONS (4)
  - CARDIAC FAILURE [None]
  - OEDEMA [None]
  - RASH [None]
  - RESPIRATORY FAILURE [None]
